FAERS Safety Report 10558929 (Version 2)
Quarter: 2016Q1

REPORT INFORMATION
  Report Type: Spontaneous
  Country: GR (occurrence: GR)
  Receive Date: 20141101
  Receipt Date: 20160325
  Transmission Date: 20160525
  Serious: Yes (Other)
  Sender: FDA-Public Use
  Company Number: PHHY2014GR141239

PATIENT
  Age: 72 Year
  Sex: Male

DRUGS (1)
  1. LESCOL XL [Suspect]
     Active Substance: FLUVASTATIN SODIUM
     Indication: PRODUCT USED FOR UNKNOWN INDICATION
     Dosage: 1 DF, QD
     Route: 065
     Dates: start: 2004, end: 201103

REACTIONS (9)
  - Leukopenia [Not Recovered/Not Resolved]
  - Immune system disorder [Unknown]
  - Breast cyst [Unknown]
  - Asthenia [Unknown]
  - Gynaecomastia [Not Recovered/Not Resolved]
  - Anhedonia [Unknown]
  - Infection [Recovered/Resolved]
  - Major depression [Unknown]
  - Negativism [Unknown]

NARRATIVE: CASE EVENT DATE: 2007
